FAERS Safety Report 8039481-3 (Version None)
Quarter: 2012Q1

REPORT INFORMATION
  Report Type: 
  Country: None (occurrence: None)
  Receive Date: 20120111
  Receipt Date: 20111215
  Transmission Date: 20120608
  Serious: No
  Sender: FDA-Public Use
  Company Number: US-AMGEN-USASP2011067028

PATIENT
  Age: 21 Year
  Sex: Female

DRUGS (1)
  1. ENBREL [Suspect]
     Indication: PSORIASIS
     Dosage: UNK
     Dates: start: 20110801

REACTIONS (4)
  - GLOMERULAR FILTRATION RATE DECREASED [None]
  - RHEUMATOID FACTOR POSITIVE [None]
  - BLOOD CREATININE INCREASED [None]
  - ANTINUCLEAR ANTIBODY POSITIVE [None]
